FAERS Safety Report 10356539 (Version 1)
Quarter: 2014Q3

REPORT INFORMATION
  Report Type: Spontaneous
  Country: US (occurrence: US)
  Receive Date: 20140801
  Receipt Date: 20140801
  Transmission Date: 20150326
  Serious: No
  Sender: FDA-Public Use
  Company Number: US-PFIZER INC-2014213192

PATIENT
  Sex: Female

DRUGS (5)
  1. RELPAX [Suspect]
     Active Substance: ELETRIPTAN HYDROBROMIDE
     Indication: MIGRAINE
     Dosage: UNK, AS NEEDED
  2. XANAX [Suspect]
     Active Substance: ALPRAZOLAM
     Dosage: UNK, AS NEEDED
  3. DILAUDID [Suspect]
     Active Substance: HYDROMORPHONE HYDROCHLORIDE
     Dosage: UNK
  4. FLECTOR [Suspect]
     Active Substance: DICLOFENAC EPOLAMINE
     Dosage: UNK
  5. ATENOLOL. [Suspect]
     Active Substance: ATENOLOL
     Dosage: UNK

REACTIONS (1)
  - Fatigue [Unknown]
